FAERS Safety Report 13374172 (Version 1)
Quarter: 2017Q1

REPORT INFORMATION
  Report Type: Spontaneous
  Country: US (occurrence: US)
  Receive Date: 20170325
  Receipt Date: 20170325
  Transmission Date: 20170429
  Serious: Yes (Hospitalization)
  Sender: FDA-Public Use
  Company Number: None

PATIENT
  Age: 62 Year
  Sex: Female
  Weight: 75 kg

DRUGS (5)
  1. ETOPOSIDE (VP-16) [Concomitant]
     Active Substance: ETOPOSIDE
     Dates: end: 20170310
  2. CYTARABINE. [Suspect]
     Active Substance: CYTARABINE
     Dates: end: 20170303
  3. SODIUM CHLORIDE (NS) [Concomitant]
  4. VANCOMYCIN [Concomitant]
     Active Substance: VANCOMYCIN
  5. DAUNORUBICIN [Concomitant]
     Active Substance: DAUNORUBICIN
     Dates: end: 20170303

REACTIONS (3)
  - Blood creatinine increased [None]
  - Dyspnoea [None]
  - Fluid overload [None]

NARRATIVE: CASE EVENT DATE: 20170318
